FAERS Safety Report 15051021 (Version 2)
Quarter: 2019Q2

REPORT INFORMATION
  Report Type: Spontaneous
  Country: US (occurrence: US)
  Receive Date: 20180622
  Receipt Date: 20190621
  Transmission Date: 20190711
  Serious: No
  Sender: FDA-Public Use
  Company Number: US-ASTELLAS-2018US015858

PATIENT
  Age: 74 Year
  Sex: Female

DRUGS (1)
  1. VESICARE [Suspect]
     Active Substance: SOLIFENACIN SUCCINATE
     Indication: SINGLE FUNCTIONAL KIDNEY
     Route: 048
     Dates: start: 2014

REACTIONS (3)
  - Off label use [Unknown]
  - Product packaging quantity issue [Unknown]
  - Product dose omission [Unknown]

NARRATIVE: CASE EVENT DATE: 201802
